FAERS Safety Report 25665114 (Version 1)
Quarter: 2025Q3

REPORT INFORMATION
  Report Type: Spontaneous
  Country: US (occurrence: US)
  Receive Date: 20250811
  Receipt Date: 20250811
  Transmission Date: 20251020
  Serious: No
  Sender: ROCHE
  Company Number: US-ROCHE-10000359748

PATIENT
  Sex: Female

DRUGS (4)
  1. OCREVUS [Suspect]
     Active Substance: OCRELIZUMAB
     Indication: Relapsing-remitting multiple sclerosis
     Route: 065
     Dates: start: 20250714
  2. PREGABALIN [Concomitant]
     Active Substance: PREGABALIN
  3. ADDERALL [Concomitant]
     Active Substance: AMPHETAMINE ASPARTATE\AMPHETAMINE SULFATE\DEXTROAMPHETAMINE SACCHARATE\DEXTROAMPHETAMINE SULFATE
  4. SALT [Concomitant]
     Active Substance: SODIUM CHLORIDE

REACTIONS (3)
  - Rash [Not Recovered/Not Resolved]
  - COVID-19 [Not Recovered/Not Resolved]
  - Tremor [Not Recovered/Not Resolved]
